FAERS Safety Report 6924240-2 (Version None)
Quarter: 2010Q3

REPORT INFORMATION
  Report Type: 
  Country: None (occurrence: None)
  Receive Date: 20100811
  Receipt Date: 20100811
  Transmission Date: 20110219
  Serious: Yes (Hospitalization)
  Sender: FDA-Public Use
  Company Number: None

PATIENT
  Sex: Male
  Weight: 107.05 kg

DRUGS (4)
  1. CISPLATIN [Suspect]
     Dosage: 157 MG
  2. GEMCITABINE HCL [Suspect]
     Dosage: 2240 MG
  3. MS CONTIN [Concomitant]
  4. OXYCODONE [Concomitant]

REACTIONS (13)
  - BLOOD CREATININE INCREASED [None]
  - CONFUSIONAL STATE [None]
  - DEHYDRATION [None]
  - DEPRESSION [None]
  - DRUG INEFFECTIVE [None]
  - DRUG INTOLERANCE [None]
  - INCOHERENT [None]
  - MULTIPLE DRUG OVERDOSE [None]
  - PROCEDURAL PAIN [None]
  - RENAL FAILURE ACUTE [None]
  - SOMNOLENCE [None]
  - TREATMENT FAILURE [None]
  - URINARY TRACT INFECTION [None]
